FAERS Safety Report 11444921 (Version 1)
Quarter: 2015Q3

REPORT INFORMATION
  Report Type: Spontaneous
  Country: US (occurrence: None)
  Receive Date: 20150831
  Receipt Date: 20150831
  Transmission Date: 20151125
  Serious: No
  Sender: FDA-Public Use
  Company Number: None

PATIENT
  Age: 18 Year
  Sex: Female
  Weight: 63.5 kg

DRUGS (5)
  1. SUMATRIPTAN. [Suspect]
     Active Substance: SUMATRIPTAN
     Indication: HEADACHE
     Route: 048
     Dates: start: 20150826
  2. TRISPRINTEC BIRTH CONTROL PILLS [Concomitant]
  3. CPAP MACHINE [Concomitant]
  4. VITAMIN D [Concomitant]
     Active Substance: CHOLECALCIFEROL
  5. MULTIVITAMIN [Concomitant]
     Active Substance: VITAMINS

REACTIONS (7)
  - Asthenia [None]
  - Abdominal discomfort [None]
  - Mydriasis [None]
  - Drug ineffective [None]
  - Headache [None]
  - Nausea [None]
  - Feeling hot [None]

NARRATIVE: CASE EVENT DATE: 20150826
